FAERS Safety Report 10050144 (Version 1)
Quarter: 2014Q2

REPORT INFORMATION
  Report Type: Spontaneous
  Country: US (occurrence: US)
  Receive Date: 20140401
  Receipt Date: 20140401
  Transmission Date: 20141212
  Serious: No
  Sender: FDA-Public Use
  Company Number: US-009507513-1403USA013488

PATIENT
  Sex: Male

DRUGS (1)
  1. AFRIN SPRAY [Suspect]
     Indication: SEASONAL ALLERGY
     Dosage: UNK, Q2H
     Route: 045

REACTIONS (5)
  - Insomnia [Unknown]
  - Paraesthesia [Unknown]
  - Inappropriate schedule of drug administration [Unknown]
  - Drug ineffective [Unknown]
  - Product quality issue [Unknown]
